FAERS Safety Report 9358119 (Version 1)
Quarter: 2013Q2

REPORT INFORMATION
  Report Type: Spontaneous
  Country: FR (occurrence: FR)
  Receive Date: 20130620
  Receipt Date: 20130620
  Transmission Date: 20140414
  Serious: Yes (Death)
  Sender: FDA-Public Use
  Company Number: FR-B.I. PHARMACEUTICALS,INC./RIDGEFIELD-2013-FF-01685FF

PATIENT
  Age: 93 Year
  Sex: Male

DRUGS (2)
  1. PRADAXA [Suspect]
  2. PREVISCAN [Concomitant]

REACTIONS (2)
  - Prostate cancer [Fatal]
  - Renal failure [Unknown]
